FAERS Safety Report 6748066-8 (Version None)
Quarter: 2010Q2

REPORT INFORMATION
  Report Type: 
  Country: None (occurrence: None)
  Receive Date: 20100531
  Receipt Date: 20100521
  Transmission Date: 20101027
  Serious: No
  Sender: FDA-Public Use
  Company Number: US-BIOGENIDEC-2010BI016881

PATIENT
  Age: 37 Year
  Sex: Female

DRUGS (2)
  1. AVONEX [Suspect]
     Indication: MULTIPLE SCLEROSIS
     Route: 030
     Dates: start: 20001201, end: 20030101
  2. AVONEX [Suspect]
     Route: 030
     Dates: start: 20030101

REACTIONS (5)
  - ASTHENIA [None]
  - CELLULITIS [None]
  - INJECTION SITE INFECTION [None]
  - INJECTION SITE MASS [None]
  - MUSCULOSKELETAL STIFFNESS [None]
